FAERS Safety Report 8021571-2 (Version None)
Quarter: 2012Q1

REPORT INFORMATION
  Report Type: 
  Country: None (occurrence: None)
  Receive Date: 20120104
  Receipt Date: 20111227
  Transmission Date: 20120608
  Serious: Yes (Other)
  Sender: FDA-Public Use
  Company Number: US-BAYER-201023703NA

PATIENT
  Age: 21 Year
  Sex: Female

DRUGS (1)
  1. MIRENA [Suspect]
     Indication: CONTRACEPTION
     Dosage: FREQUENCY: CONTINUOUS
     Route: 015
     Dates: start: 20090311

REACTIONS (5)
  - DEVICE DISLOCATION [None]
  - BACK PAIN [None]
  - ABORTION MISSED [None]
  - ABDOMINAL PAIN [None]
  - PREGNANCY WITH CONTRACEPTIVE DEVICE [None]
